FAERS Safety Report 16958485 (Version 2)
Quarter: 2019Q4

REPORT INFORMATION
  Report Type: Spontaneous
  Country: US (occurrence: US)
  Receive Date: 20190920
  Receipt Date: 20190920
  Transmission Date: 20200122
  Serious: Yes (Other)
  Sender: FDA-Public Use
  Company Number: US-JNJFOC-20190828016

PATIENT
  Sex: Female

DRUGS (1)
  1. LISTERINE POCKETMIST [Suspect]
     Active Substance: EUCALYPTOL\MENTHOL\THYMOL
     Indication: PRODUCT USED FOR UNKNOWN INDICATION

REACTIONS (1)
  - Drug dependence [None]
